FAERS Safety Report 4845861-7 (Version None)
Quarter: 2005Q4

REPORT INFORMATION
  Report Type: 
  Country: None (occurrence: None)
  Receive Date: 20051201
  Receipt Date: 20051115
  Transmission Date: 20060501
  Serious: Yes (Hospitalization)
  Sender: FDA-Public Use
  Company Number: DSA_27324_2005

PATIENT
  Age: 43 Year
  Sex: Male

DRUGS (4)
  1. TAVOR [Suspect]
     Dosage: 20 MG ONCE PO
     Route: 048
     Dates: start: 20051022, end: 20051022
  2. STANGYL [Suspect]
     Dosage: 10 G ONCE PO
     Route: 048
     Dates: start: 20051022, end: 20051022
  3. STILNOX [Suspect]
     Dosage: 9 TAB ONCE PO
     Route: 048
     Dates: start: 20051022, end: 20051022
  4. THOMBRAN [Suspect]
     Dosage: 1000 MG ONCE PO
     Route: 048
     Dates: start: 20051022, end: 20051022

REACTIONS (9)
  - AMNESIA [None]
  - BOWEL SOUNDS ABNORMAL [None]
  - COMA [None]
  - MULTIPLE DRUG OVERDOSE INTENTIONAL [None]
  - MYDRIASIS [None]
  - RESPIRATORY FAILURE [None]
  - STRABISMUS [None]
  - TACHYCARDIA [None]
  - VOMITING [None]
